FAERS Safety Report 9331383 (Version 1)
Quarter: 2013Q2

REPORT INFORMATION
  Report Type: Spontaneous
  Country: PT (occurrence: PT)
  Receive Date: 20130605
  Receipt Date: 20130605
  Transmission Date: 20140414
  Serious: Yes (Other)
  Sender: FDA-Public Use
  Company Number: PT-BAXTER-2013BAX020476

PATIENT
  Sex: Female
  Weight: 2.8 kg

DRUGS (2)
  1. KIOVIG 10 ML [Suspect]
     Indication: FOETAL EXPOSURE TIMING UNSPECIFIED
     Dosage: 1 G/KG/DAY AT 25 WEEKS OF GESTATION
     Route: 064
  2. KIOVIG 10 ML [Suspect]
     Dosage: 1 G/KG/DAY AT 37 WEEKS OF GESTATION
     Route: 064

REACTIONS (2)
  - Thrombocytopenia [Recovered/Resolved]
  - Foetal exposure during pregnancy [Recovered/Resolved]
